FAERS Safety Report 18705968 (Version 1)
Quarter: 2021Q1

REPORT INFORMATION
  Report Type: Other
  Country: US (occurrence: US)
  Receive Date: 20210106
  Receipt Date: 20210106
  Transmission Date: 20210419
  Serious: Yes (Other)
  Sender: FDA-Public Use
  Company Number: US-ROCHE-2743742

PATIENT
  Sex: Female

DRUGS (30)
  1. XOLAIR [Suspect]
     Active Substance: OMALIZUMAB
  2. XOLAIR [Suspect]
     Active Substance: OMALIZUMAB
     Indication: NORMAL PRESSURE HYDROCEPHALUS
  3. XOLAIR [Suspect]
     Active Substance: OMALIZUMAB
  4. XOLAIR [Suspect]
     Active Substance: OMALIZUMAB
  5. XOLAIR [Suspect]
     Active Substance: OMALIZUMAB
  6. XOLAIR [Suspect]
     Active Substance: OMALIZUMAB
     Indication: CHRONIC OBSTRUCTIVE PULMONARY DISEASE
  7. XOLAIR [Suspect]
     Active Substance: OMALIZUMAB
     Indication: SLEEP APNOEA SYNDROME
     Dosage: INJECT 300MG SUBCUTANEOUSLY EVERY 4 WEEK(S)
     Route: 058
  8. XOLAIR [Suspect]
     Active Substance: OMALIZUMAB
     Indication: OBESITY
  9. XOLAIR [Suspect]
     Active Substance: OMALIZUMAB
     Indication: ESSENTIAL HYPERTENSION
  10. XOLAIR [Suspect]
     Active Substance: OMALIZUMAB
  11. XOLAIR [Suspect]
     Active Substance: OMALIZUMAB
     Indication: ASTHMA
  12. XOLAIR [Suspect]
     Active Substance: OMALIZUMAB
  13. XOLAIR [Suspect]
     Active Substance: OMALIZUMAB
     Indication: GASTROOESOPHAGEAL REFLUX DISEASE
  14. XOLAIR [Suspect]
     Active Substance: OMALIZUMAB
  15. XOLAIR [Suspect]
     Active Substance: OMALIZUMAB
  16. XOLAIR [Suspect]
     Active Substance: OMALIZUMAB
  17. XOLAIR [Suspect]
     Active Substance: OMALIZUMAB
     Indication: HYPERLIPIDAEMIA
  18. XOLAIR [Suspect]
     Active Substance: OMALIZUMAB
     Indication: TYPE 2 DIABETES MELLITUS
  19. XOLAIR [Suspect]
     Active Substance: OMALIZUMAB
  20. XOLAIR [Suspect]
     Active Substance: OMALIZUMAB
  21. XOLAIR [Suspect]
     Active Substance: OMALIZUMAB
  22. XOLAIR [Suspect]
     Active Substance: OMALIZUMAB
  23. XOLAIR [Suspect]
     Active Substance: OMALIZUMAB
     Indication: DYSPHAGIA
  24. XOLAIR [Suspect]
     Active Substance: OMALIZUMAB
  25. XOLAIR [Suspect]
     Active Substance: OMALIZUMAB
  26. XOLAIR [Suspect]
     Active Substance: OMALIZUMAB
  27. XOLAIR [Suspect]
     Active Substance: OMALIZUMAB
  28. XOLAIR [Suspect]
     Active Substance: OMALIZUMAB
  29. XOLAIR [Suspect]
     Active Substance: OMALIZUMAB
  30. XOLAIR [Suspect]
     Active Substance: OMALIZUMAB

REACTIONS (1)
  - COVID-19 [Recovered/Resolved]
